FAERS Safety Report 25196290 (Version 2)
Quarter: 2025Q2

REPORT INFORMATION
  Report Type: Spontaneous
  Country: FR (occurrence: FR)
  Receive Date: 20250415
  Receipt Date: 20250515
  Transmission Date: 20250717
  Serious: Yes (Hospitalization, Other)
  Sender: TAKEDA
  Company Number: FR-BEH-2025199684

PATIENT
  Age: 20 Year
  Sex: Male
  Weight: 51 kg

DRUGS (2)
  1. HUMAN IMMUNOGLOBULIN G [Suspect]
     Active Substance: HUMAN IMMUNOGLOBULIN G
     Indication: Lung transplant rejection
  2. BERINERT [Suspect]
     Active Substance: HUMAN C1-ESTERASE INHIBITOR
     Indication: Lung transplant rejection
     Dates: start: 20190911, end: 20191015

REACTIONS (3)
  - Viral infection [Unknown]
  - Superinfection bacterial [Unknown]
  - Off label use [Unknown]

NARRATIVE: CASE EVENT DATE: 20190911
